FAERS Safety Report 5716240-5 (Version None)
Quarter: 2008Q2

REPORT INFORMATION
  Report Type: 
  Country: None (occurrence: None)
  Receive Date: 20080424
  Receipt Date: 20080415
  Transmission Date: 20081010
  Serious: No
  Sender: FDA-Public Use
  Company Number: A0702223A

PATIENT
  Age: 69 Year
  Sex: Female
  Weight: 94.1 kg

DRUGS (1)
  1. ADVAIR HFA [Suspect]
     Indication: CHRONIC OBSTRUCTIVE PULMONARY DISEASE
     Route: 055

REACTIONS (5)
  - COUGH [None]
  - DYSPHONIA [None]
  - FAILURE OF IMPLANT [None]
  - LARYNGITIS [None]
  - TOOTH ABSCESS [None]
